FAERS Safety Report 5197344-5 (Version None)
Quarter: 2006Q4

REPORT INFORMATION
  Report Type: 
  Country: None (occurrence: None)
  Receive Date: 20060929
  Receipt Date: 20060808
  Transmission Date: 20070319
  Serious: Yes (Hospitalization)
  Sender: FDA-Public Use
  Company Number: 13469200

PATIENT
  Sex: Male

DRUGS (1)
  1. EMSAM [Suspect]
     Dosage: 6 MILLIGRAM, 1/1 DAY

REACTIONS (1)
  - SUICIDAL IDEATION [None]
